FAERS Safety Report 8463037-1 (Version None)
Quarter: 2012Q2

REPORT INFORMATION
  Report Type: 
  Country: None (occurrence: None)
  Receive Date: 20120625
  Receipt Date: 20100419
  Transmission Date: 20120825
  Serious: Yes (Other)
  Sender: FDA-Public Use
  Company Number: DE-ROCHE-713432

PATIENT
  Sex: Female

DRUGS (2)
  1. ANTIARRHYTHMIC NOS [Concomitant]
     Indication: ARRHYTHMIA
  2. BONIVA [Suspect]
     Indication: OSTEOPOROSIS
     Route: 048

REACTIONS (2)
  - ARRHYTHMIA [None]
  - INFLUENZA LIKE ILLNESS [None]
